FAERS Safety Report 9540051 (Version 2)
Quarter: 2014Q1

REPORT INFORMATION
  Report Type: Spontaneous
  Country: US (occurrence: US)
  Receive Date: 20130920
  Receipt Date: 20140307
  Transmission Date: 20141002
  Serious: Yes (Death, Hospitalization)
  Sender: FDA-Public Use
  Company Number: US-B.I. PHARMACEUTICALS,INC./RIDGEFIELD-2013-BI-29214BP

PATIENT
  Age: 81 Year
  Sex: Male
  Weight: 62.6 kg

DRUGS (18)
  1. PRADAXA [Suspect]
     Indication: ATRIAL FIBRILLATION
     Dosage: 300 MG
     Route: 048
     Dates: start: 20110822, end: 201110
  2. PRADAXA [Suspect]
     Indication: ANTICOAGULANT THERAPY
  3. DIGOXIN [Concomitant]
     Route: 065
  4. ZOCOR [Concomitant]
     Dosage: 10 MG
     Route: 065
  5. AMLODIPINE [Concomitant]
     Dosage: 2.5 MG
     Route: 065
  6. NITROGLYCERIN [Concomitant]
     Indication: CHEST PAIN
     Route: 060
  7. SEROQUEL [Concomitant]
     Dosage: 25 MG
     Route: 065
  8. PRILOSEC [Concomitant]
     Dosage: 20 MG
     Route: 065
  9. SPIRIVA [Concomitant]
     Dosage: 36 MCG
     Route: 065
  10. PERCOCET [Concomitant]
     Indication: PAIN
     Route: 065
  11. RESTORIL [Concomitant]
     Indication: INSOMNIA
     Dosage: 30 MG
     Route: 065
  12. SENNA [Concomitant]
     Route: 065
  13. TUMS [Concomitant]
     Route: 065
  14. LIDODERM [Concomitant]
     Route: 065
  15. AMOXICILLIN [Concomitant]
     Indication: URINARY TRACT INFECTION
     Dosage: 1500 MG
     Route: 065
     Dates: end: 20111007
  16. OXYCODONE [Concomitant]
     Route: 065
  17. POTASSIUM [Concomitant]
     Dosage: 40 MEQ
     Route: 065
  18. SIMVASTATIN [Concomitant]
     Dosage: 10 MG
     Route: 065

REACTIONS (11)
  - Lower gastrointestinal haemorrhage [Fatal]
  - Haemorrhagic anaemia [Fatal]
  - Cerebrovascular accident [Fatal]
  - Lower gastrointestinal haemorrhage [Recovered/Resolved]
  - Shock haemorrhagic [Unknown]
  - Coagulopathy [Unknown]
  - Renal failure acute [Recovered/Resolved]
  - Urinary tract infection [Unknown]
  - Mental status changes [Unknown]
  - Clostridium difficile colitis [Unknown]
  - Epistaxis [Unknown]
